FAERS Safety Report 21588726 (Version 1)
Quarter: 2022Q4

REPORT INFORMATION
  Report Type: Spontaneous
  Country: JP (occurrence: JP)
  Receive Date: 20221114
  Receipt Date: 20221114
  Transmission Date: 20230113
  Serious: Yes (Hospitalization, Other)
  Sender: FDA-Public Use
  Company Number: JP-ONO-2022JP030274

PATIENT
  Age: 80 Year
  Sex: Male
  Weight: 49.5 kg

DRUGS (6)
  1. OPDIVO [Suspect]
     Active Substance: NIVOLUMAB
     Indication: Oesophageal carcinoma
     Route: 041
     Dates: start: 20220711, end: 20220711
  2. FLUOROURACIL [Concomitant]
     Active Substance: FLUOROURACIL
     Indication: Oesophageal carcinoma
  3. CISPLATIN [Concomitant]
     Active Substance: CISPLATIN
     Indication: Oesophageal carcinoma
  4. LANSOPRAZOLE [Concomitant]
     Active Substance: LANSOPRAZOLE
     Indication: Product used for unknown indication
  5. ENORAS [Concomitant]
     Indication: Product used for unknown indication
     Dosage: (SOLUTION (EXCEPT SYRUP))
  6. ALLOID G [Concomitant]
     Active Substance: SODIUM ALGINATE
     Indication: Product used for unknown indication
     Dosage: SOLUTION (EXCEPT SYRUP))
     Route: 048

REACTIONS (6)
  - Erythema multiforme [Recovering/Resolving]
  - Steroid diabetes [Unknown]
  - Staphylococcal infection [Unknown]
  - Blood zinc decreased [Unknown]
  - Large intestine polyp [Unknown]
  - Productive cough [Unknown]

NARRATIVE: CASE EVENT DATE: 20220724
